FAERS Safety Report 4287182-X (Version None)
Quarter: 2004Q1

REPORT INFORMATION
  Report Type: 
  Country: None (occurrence: None)
  Receive Date: 20040126
  Receipt Date: 20030822
  Transmission Date: 20041129
  Serious: No
  Sender: FDA-Public Use
  Company Number: USA030845150

PATIENT
  Age: 77 Year
  Sex: Female

DRUGS (6)
  1. FORTEO [Suspect]
     Indication: OSTEOPOROSIS
     Dosage: 2 DSG FORM/WEEK
     Dates: start: 20030201
  2. ACTONEL [Concomitant]
  3. ATENOLOL [Concomitant]
  4. LANOXIN [Concomitant]
  5. PREDNISONE [Concomitant]
  6. DIOVAN [Concomitant]

REACTIONS (6)
  - ABDOMINAL PAIN UPPER [None]
  - DIARRHOEA [None]
  - DIZZINESS [None]
  - ILL-DEFINED DISORDER [None]
  - MUSCULAR WEAKNESS [None]
  - NAUSEA [None]
